FAERS Safety Report 19000505 (Version 2)
Quarter: 2024Q2

REPORT INFORMATION
  Report Type: Spontaneous
  Country: US (occurrence: US)
  Receive Date: 20210312
  Receipt Date: 20240411
  Transmission Date: 20240715
  Serious: Yes (Death, Life-Threatening, Hospitalization, Other)
  Sender: FDA-Public Use
  Company Number: None

PATIENT
  Age: 46 Year
  Sex: Male

DRUGS (3)
  1. MYCOPHENOLATE MOFETIL [Suspect]
     Active Substance: MYCOPHENOLATE MOFETIL
     Indication: Immunosuppressant drug therapy
     Dosage: 720 MILLIGRAM, BID
     Route: 065
  2. TACROLIMUS [Suspect]
     Active Substance: TACROLIMUS
     Indication: Immunosuppressant drug therapy
     Dosage: 5 MILLIGRAM, BID
     Route: 065
  3. PREDNISONE [Suspect]
     Active Substance: PREDNISONE
     Indication: Immunosuppressant drug therapy
     Dosage: 7.5 MILLIGRAM, QD
     Route: 065

REACTIONS (10)
  - Acute kidney injury [Unknown]
  - Upper respiratory tract infection [Fatal]
  - Prosthetic valve endocarditis [Fatal]
  - Streptococcal endocarditis [Fatal]
  - Endocarditis viral [Fatal]
  - Alpha haemolytic streptococcal infection [Fatal]
  - Cytomegalovirus infection [Fatal]
  - Transplant rejection [Recovered/Resolved]
  - Enterococcal infection [Unknown]
  - Transplant failure [Unknown]

NARRATIVE: CASE EVENT DATE: 20140101
